FAERS Safety Report 6849093-2 (Version None)
Quarter: 2010Q3

REPORT INFORMATION
  Report Type: 
  Country: None (occurrence: None)
  Receive Date: 20100716
  Receipt Date: 20070926
  Transmission Date: 20110219
  Serious: No
  Sender: FDA-Public Use
  Company Number: US-PFIZER INC-2007081966

PATIENT
  Sex: Female
  Weight: 60 kg

DRUGS (4)
  1. CHANTIX [Suspect]
     Indication: SMOKING CESSATION THERAPY
     Dates: start: 20070901, end: 20070901
  2. SYNTHROID [Concomitant]
     Indication: THYROID DISORDER
  3. ZITHROMAX [Concomitant]
     Indication: RESPIRATORY TRACT INFECTION
     Dates: start: 20070101, end: 20070101
  4. NASAL PREPARATIONS [Concomitant]
     Indication: RESPIRATORY TRACT INFECTION
     Dates: start: 20070101, end: 20070101

REACTIONS (1)
  - RENAL PAIN [None]
